FAERS Safety Report 5980164-9 (Version None)
Quarter: 2008Q4

REPORT INFORMATION
  Report Type: 
  Country: None (occurrence: None)
  Receive Date: 20081202
  Receipt Date: 20081202
  Transmission Date: 20090506
  Serious: Yes (Life-Threatening, Hospitalization)
  Sender: FDA-Public Use
  Company Number: None

PATIENT
  Age: 54 Year
  Sex: Male
  Weight: 95 kg

DRUGS (1)
  1. AMOXICILLIN [Suspect]
     Indication: UPPER RESPIRATORY TRACT INFECTION
     Dosage: UNKNOWN PO
     Route: 048
     Dates: start: 20081109, end: 20081112

REACTIONS (3)
  - DRUG ERUPTION [None]
  - EXFOLIATIVE RASH [None]
  - RASH ERYTHEMATOUS [None]
